FAERS Safety Report 5941242-3 (Version None)
Quarter: 2008Q4

REPORT INFORMATION
  Report Type: 
  Country: None (occurrence: None)
  Receive Date: 20081104
  Receipt Date: 20081104
  Transmission Date: 20090506
  Serious: No
  Sender: FDA-Public Use
  Company Number: None

PATIENT
  Age: 50 Year
  Sex: Female
  Weight: 60.782 kg

DRUGS (5)
  1. PROVERA [Suspect]
     Indication: AMENORRHOEA
     Dosage: 1 Q DAY 3/14/2008 1 QDAY X 10 DAYS 5/1/2008
     Dates: start: 20080314
  2. PROVERA [Suspect]
     Indication: PREMATURE MENOPAUSE
     Dosage: 1 Q DAY 3/14/2008 1 QDAY X 10 DAYS 5/1/2008
     Dates: start: 20080314
  3. PROVERA [Suspect]
     Indication: AMENORRHOEA
     Dosage: 1 Q DAY 3/14/2008 1 QDAY X 10 DAYS 5/1/2008
     Dates: start: 20080501
  4. PROVERA [Suspect]
     Indication: PREMATURE MENOPAUSE
     Dosage: 1 Q DAY 3/14/2008 1 QDAY X 10 DAYS 5/1/2008
     Dates: start: 20080501
  5. SEASONALE [Concomitant]

REACTIONS (3)
  - ERYTHEMA [None]
  - PAIN [None]
  - RASH PAPULAR [None]
